FAERS Safety Report 23343136 (Version 1)
Quarter: 2023Q4

REPORT INFORMATION
  Report Type: Spontaneous
  Country: US (occurrence: None)
  Receive Date: 20231226
  Receipt Date: 20231226
  Transmission Date: 20240110
  Serious: Yes (Hospitalization)
  Sender: FDA-Public Use
  Company Number: None

PATIENT
  Age: 63 Year
  Sex: Female

DRUGS (1)
  1. VUMERITY [Suspect]
     Active Substance: DIROXIMEL FUMARATE
     Indication: Multiple sclerosis
     Dosage: 462 MG TWICE DAILY BY MOUTH?
     Route: 048
     Dates: start: 202307

REACTIONS (6)
  - Chest pain [None]
  - Hypertension [None]
  - Progressive multifocal leukoencephalopathy [None]
  - Disorientation [None]
  - Panic reaction [None]
  - Fear [None]

NARRATIVE: CASE EVENT DATE: 20231209
